FAERS Safety Report 7411752-0 (Version None)
Quarter: 2011Q2

REPORT INFORMATION
  Report Type: 
  Country: None (occurrence: None)
  Receive Date: 20110413
  Receipt Date: 20101230
  Transmission Date: 20111010
  Serious: Yes (Other)
  Sender: FDA-Public Use
  Company Number: US-BRISTOL-MYERS SQUIBB COMPANY-15443534

PATIENT
  Age: 56 Year
  Sex: Male

DRUGS (1)
  1. ERBITUX [Suspect]
     Indication: HEAD AND NECK CANCER
     Route: 042
     Dates: start: 20101203

REACTIONS (5)
  - ANGIOEDEMA [None]
  - OEDEMA PERIPHERAL [None]
  - ERYTHEMA [None]
  - THROAT IRRITATION [None]
  - COUGH [None]
